FAERS Safety Report 7101462-1 (Version None)
Quarter: 2010Q4

REPORT INFORMATION
  Report Type: 
  Country: None (occurrence: None)
  Receive Date: 20101115
  Receipt Date: 20101101
  Transmission Date: 20110411
  Serious: Yes (Other)
  Sender: FDA-Public Use
  Company Number: PHFR2010GB04384

PATIENT
  Sex: Male

DRUGS (6)
  1. CLOZARIL [Suspect]
     Indication: SCHIZOPHRENIA
     Dosage: 325 MG
     Route: 048
     Dates: start: 20081219
  2. PARACETAMOL [Concomitant]
  3. CITALOPRAM [Concomitant]
  4. SIMVASTATIN [Concomitant]
  5. ZOPICLONE [Concomitant]
  6. HYOSCINE HBR HYT [Concomitant]

REACTIONS (4)
  - ALCOHOL ABUSE [None]
  - INTENTIONAL SELF-INJURY [None]
  - OVERDOSE [None]
  - SOMNOLENCE [None]
